FAERS Safety Report 9150003 (Version 1)
Quarter: 2013Q1

REPORT INFORMATION
  Report Type: Spontaneous
  Country: BR (occurrence: None)
  Receive Date: 20130131
  Receipt Date: 20130131
  Transmission Date: 20140127
  Serious: Yes (Other)
  Sender: FDA-Public Use
  Company Number: 2013-000272

PATIENT
  Age: 80 Year
  Sex: Male
  Weight: 57 kg

DRUGS (6)
  1. ACTONEL (RISEDRONATE SODIUM) TABLET, 150MG [Suspect]
     Indication: OSTEOPOROSIS
     Route: 048
     Dates: start: 201105
  2. PANTOPRAZOLE (PANTOPRAZOLE) [Concomitant]
  3. AMLODIPINE BESILATE (AMLODIPINE BESILATE) [Concomitant]
  4. HARPAGOPHYTUM PROCUMBENS (HARPAGOPHTUIM PROCUMBENS) [Concomitant]
  5. CALCIUM CARBONATE W/VITAMIN D /00944201/ (CALCIUM CARBONATE, COLECALCIFEROL) [Concomitant]
  6. TAPAZOL /00022901/ (THIAMAZOLE) [Concomitant]

REACTIONS (1)
  - Parkinson^s disease [None]
